FAERS Safety Report 7586192-4 (Version None)
Quarter: 2011Q3

REPORT INFORMATION
  Report Type: 
  Country: None (occurrence: None)
  Receive Date: 20110701
  Receipt Date: 20110524
  Transmission Date: 20111222
  Serious: Yes (Other)
  Sender: FDA-Public Use
  Company Number: US-BAYER-2011-001150

PATIENT
  Age: 18 Year
  Sex: Female
  Weight: 100 kg

DRUGS (11)
  1. AMOXICILLIN [Concomitant]
     Indication: ANTIBIOTIC THERAPY
     Dosage: 500 MG, BID
     Route: 048
  2. FIORICET [Concomitant]
     Dosage: 1 TEASPOON 3 TIMES DAILY AS NEEDED
     Route: 048
  3. NAPROXEN [Concomitant]
  4. YAZ [Suspect]
     Indication: CONTRACEPTION
     Dosage: 1 DF, QD
     Route: 048
     Dates: start: 20080801, end: 20091001
  5. PHENERGAN HCL [Concomitant]
     Dosage: 20 MG, EVERY 6 HOURS AS NEEDED
     Route: 048
  6. IBUPROFEN [Concomitant]
  7. DOXYCYCLINE [Concomitant]
     Indication: MIGRAINE
     Dosage: 100 MG, BID
     Route: 048
  8. DOXYCYCLINE [Concomitant]
     Indication: ACUTE SINUSITIS
  9. LEXAPRO [Concomitant]
     Dosage: 10 MG, QD
     Route: 048
  10. NUBAIN [Concomitant]
     Dosage: 10 MG, UNK
     Route: 030
     Dates: start: 20091007, end: 20091007
  11. FLAGYL [Concomitant]
     Dosage: 500 MG, BID
     Route: 048

REACTIONS (3)
  - GALLBLADDER DISORDER [None]
  - PAIN [None]
  - CHOLECYSTITIS CHRONIC [None]
